FAERS Safety Report 17218418 (Version 1)
Quarter: 2020Q1

REPORT INFORMATION
  Report Type: Spontaneous
  Country: US (occurrence: US)
  Receive Date: 20191230
  Receipt Date: 20191230
  Transmission Date: 20200409
  Serious: No
  Sender: FDA-Public Use
  Company Number: None

PATIENT
  Age: 64 Year
  Sex: Male
  Weight: 69.75 kg

DRUGS (14)
  1. FLUPHENAZINE [Concomitant]
     Active Substance: FLUPHENAZINE
  2. MAITAKE MUSHROOM EXTRACT [Concomitant]
  3. CALCIUM [Concomitant]
     Active Substance: CALCIUM
  4. SUPER ENZYME [Concomitant]
  5. TOENAIL ANTIFUNGAL BRUSH ON [Concomitant]
  6. D3 1000 [Concomitant]
  7. MAGNESIUM [Concomitant]
     Active Substance: MAGNESIUM
  8. VITAMIN C [Concomitant]
     Active Substance: ASCORBIC ACID
  9. OMEGA 3 [Concomitant]
     Active Substance: OMEGA-3 FATTY ACIDS
  10. MULTIVTAMIN SOLGAR VM75 [Concomitant]
  11. OLANZEPINE 10MG [Concomitant]
     Active Substance: OLANZAPINE
  12. CRANBERRY EXTRACT [Concomitant]
     Active Substance: CRANBERRY JUICE
  13. NADH [Concomitant]
     Active Substance: NADH
  14. INGREZZA [Suspect]
     Active Substance: VALBENAZINE
     Indication: TARDIVE DYSKINESIA
     Dosage: ?          QUANTITY:1 CAPSULE(S);?
     Route: 048

REACTIONS (3)
  - Fall [None]
  - Tardive dyskinesia [None]
  - Muscular weakness [None]

NARRATIVE: CASE EVENT DATE: 19180814
